FAERS Safety Report 8254413 (Version 4)
Quarter: 2013Q3

REPORT INFORMATION
  Report Type: Report from Study
  Country: US (occurrence: US)
  Receive Date: 20111118
  Receipt Date: 20130809
  Transmission Date: 20140515
  Serious: Yes (Hospitalization, Other)
  Sender: FDA-Public Use
  Company Number: US-PFIZER INC-2011279907

PATIENT
  Age: 50 Year
  Sex: Female
  Weight: 79.37 kg

DRUGS (7)
  1. LYRICA [Suspect]
     Indication: NEURALGIA
     Dosage: 100 MG, 2X/DAY
     Route: 048
     Dates: start: 2010
  2. LYRICA [Suspect]
     Indication: BACK DISORDER
     Dosage: UNK
     Route: 048
     Dates: end: 2011
  3. LYRICA [Suspect]
     Indication: OSTEOPOROSIS
  4. LYRICA [Suspect]
     Indication: PSORIASIS
  5. LYRICA [Suspect]
     Indication: FIBROMYALGIA
  6. LYRICA [Suspect]
     Indication: BACK PAIN
  7. CELEBREX [Concomitant]
     Indication: ARTHRITIS
     Dosage: 200 MG, UNK
     Route: 048

REACTIONS (13)
  - Pulmonary embolism [Recovered/Resolved]
  - Drug intolerance [Unknown]
  - Drug hypersensitivity [Unknown]
  - Slow speech [Recovered/Resolved]
  - Impaired driving ability [Recovered/Resolved]
  - Memory impairment [Recovered/Resolved]
  - Balance disorder [Recovered/Resolved]
  - Pulmonary oedema [Unknown]
  - Dizziness [Recovered/Resolved]
  - Headache [Recovered/Resolved]
  - Eye movement disorder [Recovered/Resolved]
  - Amnesia [Unknown]
  - Confusional state [Unknown]
